FAERS Safety Report 10267096 (Version 4)
Quarter: 2015Q1

REPORT INFORMATION
  Report Type: Spontaneous
  Country: GB (occurrence: GB)
  Receive Date: 20140630
  Receipt Date: 20150210
  Transmission Date: 20150720
  Serious: Yes (Hospitalization)
  Sender: FDA-Public Use
  Company Number: GB-JNJFOC-20140618186

PATIENT
  Age: 74 Year
  Sex: Female
  Weight: 70.76 kg

DRUGS (5)
  1. ASPIRIN. [Concomitant]
     Active Substance: ASPIRIN
     Dosage: MG DELAYED RELEASE TABLET
     Route: 065
  2. ALEVE [Concomitant]
     Active Substance: NAPROXEN SODIUM
     Route: 065
  3. DIPHENHYDRAMINE HYDROCHLORIDE. [Suspect]
     Active Substance: DIPHENHYDRAMINE HYDROCHLORIDE
     Indication: PRODUCT USED FOR UNKNOWN INDICATION
     Dosage: 3 TABLETS OVER APPROXMATELY 5 DAYS
     Route: 048
     Dates: start: 201404, end: 201404
  4. PREDNISOLONE ACETATE. [Concomitant]
     Active Substance: PREDNISOLONE ACETATE
     Dosage: ONE DROP TO RIGHT EYE HOURLY WHEN AWAKE.
     Route: 047
  5. COSOPT [Concomitant]
     Active Substance: DORZOLAMIDE HYDROCHLORIDE\TIMOLOL MALEATE
     Route: 047

REACTIONS (6)
  - Blindness unilateral [Recovering/Resolving]
  - Eye pain [Unknown]
  - Angle closure glaucoma [Unknown]
  - Intraocular pressure increased [Recovering/Resolving]
  - Headache [Unknown]
  - Corneal thickening [Unknown]

NARRATIVE: CASE EVENT DATE: 20140414
